FAERS Safety Report 23322983 (Version 1)
Quarter: 2023Q4

REPORT INFORMATION
  Report Type: Spontaneous
  Country: US (occurrence: None)
  Receive Date: 20231220
  Receipt Date: 20231220
  Transmission Date: 20240109
  Serious: No
  Sender: FDA-Public Use
  Company Number: US-ROCHE-3275493

PATIENT
  Sex: Female

DRUGS (2)
  1. RITUXAN [Suspect]
     Active Substance: RITUXIMAB
     Indication: Marginal zone lymphoma
     Dosage: DAY 1, 8 AND 15
     Route: 041
     Dates: start: 20151201
  2. RITUXAN [Suspect]
     Active Substance: RITUXIMAB
     Indication: Autoimmune haemolytic anaemia

REACTIONS (3)
  - Alopecia [Unknown]
  - Hair texture abnormal [Unknown]
  - Off label use [Unknown]
